FAERS Safety Report 5559431-9 (Version None)
Quarter: 2007Q4

REPORT INFORMATION
  Report Type: 
  Country: None (occurrence: None)
  Receive Date: 20071214
  Receipt Date: 20070924
  Transmission Date: 20080405
  Serious: No
  Sender: FDA-Public Use
  Company Number: US-ABBOTT-07P-163-0418973-00

PATIENT
  Sex: Male
  Weight: 81.72 kg

DRUGS (2)
  1. HUMIRA [Suspect]
     Indication: PSORIATIC ARTHROPATHY
     Route: 058
     Dates: start: 20070515, end: 20070828
  2. TOPICAL OINTMENT [Concomitant]
     Indication: PSORIASIS
     Route: 061

REACTIONS (3)
  - PLATELET COUNT DECREASED [None]
  - VERTIGO [None]
  - WHITE BLOOD CELL COUNT DECREASED [None]
